FAERS Safety Report 9812783 (Version 1)
Quarter: 2014Q1

REPORT INFORMATION
  Report Type: Spontaneous
  Country: US (occurrence: None)
  Receive Date: 20140109
  Receipt Date: 20140109
  Transmission Date: 20141002
  Serious: Yes (Hospitalization)
  Sender: FDA-Public Use
  Company Number: None

PATIENT
  Age: 57 Year
  Sex: Female

DRUGS (1)
  1. PYLERA [Suspect]

REACTIONS (4)
  - Nausea [None]
  - Vomiting [None]
  - Weight decreased [None]
  - Asthenia [None]
